FAERS Safety Report 5184888-5 (Version None)
Quarter: 2006Q4

REPORT INFORMATION
  Report Type: 
  Country: None (occurrence: None)
  Receive Date: 20061220
  Receipt Date: 20060504
  Transmission Date: 20070319
  Serious: No
  Sender: FDA-Public Use
  Company Number: US-GLAXOSMITHKLINE-A0604352A

PATIENT
  Age: 29 Year
  Sex: Male

DRUGS (1)
  1. TARGET NTS 14MG [Suspect]
     Dates: start: 20060503

REACTIONS (3)
  - ANOREXIA [None]
  - FATIGUE [None]
  - SLEEP TERROR [None]
